FAERS Safety Report 7495745-3 (Version None)
Quarter: 2011Q2

REPORT INFORMATION
  Report Type: 
  Country: None (occurrence: None)
  Receive Date: 20110523
  Receipt Date: 20110510
  Transmission Date: 20111010
  Serious: Yes (Hospitalization)
  Sender: FDA-Public Use
  Company Number: US-ELI_LILLY_AND_COMPANY-US201105004398

PATIENT
  Sex: Male

DRUGS (2)
  1. ZYPREXA [Suspect]
     Indication: DEVELOPMENTAL DELAY
     Dosage: 27.5 MG, UNK
  2. SEROQUEL [Concomitant]

REACTIONS (5)
  - CONDITION AGGRAVATED [None]
  - OFF LABEL USE [None]
  - OVERDOSE [None]
  - LACERATION [None]
  - AGGRESSION [None]
